FAERS Safety Report 12428284 (Version 2)
Quarter: 2016Q3

REPORT INFORMATION
  Report Type: Spontaneous
  Country: NO (occurrence: NO)
  Receive Date: 20160602
  Receipt Date: 20160824
  Transmission Date: 20161109
  Serious: Yes (Hospitalization)
  Sender: FDA-Public Use
  Company Number: NO-GLAXOSMITHKLINE-NO2016GSK077806

PATIENT
  Age: 18 Year
  Sex: Female

DRUGS (4)
  1. NUCALA [Suspect]
     Active Substance: MEPOLIZUMAB
     Indication: ASTHMA
     Dosage: UNK
     Dates: start: 20160121
  2. PREDNISOLON [Concomitant]
     Active Substance: PREDNISOLONE
     Dosage: 60 MG, QD
  3. PREDNISOLON [Concomitant]
     Active Substance: PREDNISOLONE
     Dosage: 35 MG, QD
  4. PREDNISOLON [Concomitant]
     Active Substance: PREDNISOLONE
     Dosage: 40 MG, QD

REACTIONS (5)
  - General physical health deterioration [Unknown]
  - Psychological factor affecting medical condition [Unknown]
  - Inappropriate schedule of drug administration [Not Recovered/Not Resolved]
  - Asthma [Not Recovered/Not Resolved]
  - Drug ineffective [Not Recovered/Not Resolved]

NARRATIVE: CASE EVENT DATE: 201601
